FAERS Safety Report 17934369 (Version 1)
Quarter: 2020Q2

REPORT INFORMATION
  Report Type: Spontaneous
  Country: US (occurrence: US)
  Receive Date: 20200623
  Receipt Date: 20200623
  Transmission Date: 20200714
  Serious: Yes (Other)
  Sender: FDA-Public Use
  Company Number: None

PATIENT
  Age: 29 Year
  Sex: Male
  Weight: 68 kg

DRUGS (3)
  1. CEFTRIAXONE 2 GRAMS Q24 [Concomitant]
     Dates: start: 20200616, end: 20200620
  2. DOXYCYCLINE 100 MG BID [Concomitant]
     Dates: start: 20200616, end: 20200620
  3. REMDESIVIR. [Suspect]
     Active Substance: REMDESIVIR
     Indication: COVID-19
     Route: 042
     Dates: start: 20200616, end: 20200619

REACTIONS (3)
  - Alanine aminotransferase increased [None]
  - Hepatic enzyme increased [None]
  - Therapy interrupted [None]

NARRATIVE: CASE EVENT DATE: 20200619
